FAERS Safety Report 9117797 (Version 2)
Quarter: 2013Q3

REPORT INFORMATION
  Report Type: Report from Study
  Country: BR (occurrence: BR)
  Receive Date: 20130225
  Receipt Date: 20130918
  Transmission Date: 20140515
  Serious: Yes (Hospitalization)
  Sender: FDA-Public Use
  Company Number: BR-US-EMD SERONO, INC.-7195225

PATIENT
  Age: 25 Year
  Sex: Male

DRUGS (2)
  1. REBIF [Suspect]
     Indication: RELAPSING-REMITTING MULTIPLE SCLEROSIS
     Dates: start: 20120820
  2. NOVALGINA [Concomitant]
     Indication: PAIN

REACTIONS (7)
  - Vision blurred [Recovered/Resolved]
  - Eye pain [Recovering/Resolving]
  - Multiple sclerosis relapse [Unknown]
  - Central nervous system lesion [Recovering/Resolving]
  - Eye inflammation [Unknown]
  - Stress [Unknown]
  - Fatigue [Unknown]
